FAERS Safety Report 9127310 (Version 1)
Quarter: 2013Q1

REPORT INFORMATION
  Report Type: Spontaneous
  Country: US (occurrence: US)
  Receive Date: 20130228
  Receipt Date: 20130228
  Transmission Date: 20140127
  Serious: No
  Sender: FDA-Public Use
  Company Number: US-GLAXOSMITHKLINE-A0968224A

PATIENT
  Age: 76 Year
  Sex: Female

DRUGS (9)
  1. LAMOTRIGINE [Suspect]
     Indication: CONVULSION
     Dosage: 100MG VARIABLE DOSE
     Route: 048
     Dates: start: 20120209, end: 20120223
  2. SINGULAIR [Concomitant]
  3. SYNTHROID [Concomitant]
  4. B-12 [Concomitant]
  5. COQ10 [Concomitant]
  6. BIOTIN [Concomitant]
  7. CALCIUM [Concomitant]
  8. VITAMIN C [Concomitant]
  9. MVI [Concomitant]

REACTIONS (12)
  - Pruritus [Recovered/Resolved]
  - Pruritus generalised [Unknown]
  - Dizziness [Unknown]
  - Vaginal infection [Unknown]
  - Headache [Unknown]
  - Musculoskeletal stiffness [Unknown]
  - Photophobia [Unknown]
  - Ocular hyperaemia [Unknown]
  - Abnormal sensation in eye [Unknown]
  - Chills [Unknown]
  - Hot flush [Unknown]
  - Adverse drug reaction [Not Recovered/Not Resolved]
